FAERS Safety Report 17263295 (Version 1)
Quarter: 2020Q1

REPORT INFORMATION
  Report Type: Spontaneous
  Country: US (occurrence: US)
  Receive Date: 20200111
  Receipt Date: 20200111
  Transmission Date: 20200409
  Serious: Yes (Hospitalization)
  Sender: FDA-Public Use
  Company Number: None

PATIENT
  Age: 27 Year
  Sex: Female
  Weight: 60.75 kg

DRUGS (1)
  1. NEXPLANON [Suspect]
     Active Substance: ETONOGESTREL
     Indication: CONTRACEPTION
     Dosage: ?          OTHER ROUTE:INJECTED INTO ARM?
     Dates: start: 20180702, end: 20190923

REACTIONS (4)
  - Mood swings [None]
  - Psychotic disorder [None]
  - Menorrhagia [None]
  - Depression [None]

NARRATIVE: CASE EVENT DATE: 20190923
